FAERS Safety Report 5679482-3 (Version None)
Quarter: 2008Q1

REPORT INFORMATION
  Report Type: 
  Country: None (occurrence: None)
  Receive Date: 20080325
  Receipt Date: 20080313
  Transmission Date: 20080703
  Serious: Yes (Hospitalization)
  Sender: FDA-Public Use
  Company Number: ES-PFIZER INC-2008023887

PATIENT
  Age: 63 Year
  Sex: Female

DRUGS (8)
  1. EPANUTIN [Suspect]
     Indication: MENINGIOMA
     Route: 048
     Dates: start: 20071228, end: 20080108
  2. METAMIZOLE MAGNESIUM [Concomitant]
     Route: 048
  3. TRANXILIUM [Concomitant]
  4. EUTIROX [Concomitant]
     Route: 048
  5. DEXAMETHASONE TAB [Concomitant]
     Route: 048
  6. OMEPRAZOLE [Concomitant]
  7. VERISCAL D [Concomitant]
  8. CALCIUM CARBONATE [Concomitant]

REACTIONS (2)
  - DRY MOUTH [None]
  - RASH [None]
